FAERS Safety Report 18308425 (Version 5)
Quarter: 2020Q4

REPORT INFORMATION
  Report Type: Report from Study
  Country: AR (occurrence: AR)
  Receive Date: 20200924
  Receipt Date: 20201119
  Transmission Date: 20210113
  Serious: Yes (Hospitalization, Other)
  Sender: FDA-Public Use
  Company Number: NVSC2020AR254553

PATIENT
  Age: 60 Year
  Sex: Female
  Weight: 80 kg

DRUGS (24)
  1. OMEPRAZOLE. [Concomitant]
     Active Substance: OMEPRAZOLE
     Indication: DYSPEPSIA
     Dosage: 20 MG, 1 TABLET / DAY
     Route: 065
     Dates: start: 20200129
  2. ACETAZOLAMIDE. [Concomitant]
     Active Substance: ACETAZOLAMIDE
     Dosage: 250 MG EVERY 24 HOURS
     Route: 065
     Dates: start: 20200327, end: 20200331
  3. POTASSIUM GLUCONATE [Concomitant]
     Active Substance: POTASSIUM GLUCONATE
     Indication: IRIDOCYCLITIS
     Dosage: 1 TABLESPOON EVERY 12 HOURS
     Route: 065
     Dates: start: 20200205, end: 20200211
  4. ATROPINE. [Concomitant]
     Active Substance: ATROPINE
     Indication: PROPHYLAXIS
     Dosage: 10 %, Q24H
     Route: 065
     Dates: start: 20200331
  5. BROLUCIZUMAB. [Suspect]
     Active Substance: BROLUCIZUMAB
     Indication: DIABETIC RETINAL OEDEMA
     Dosage: 3MG/0.05ML 0.23ML
     Route: 031
     Dates: start: 20190822
  6. PREDNISOLONE ACETATE. [Concomitant]
     Active Substance: PREDNISOLONE ACETATE
     Indication: IRIDOCYCLITIS
     Dosage: 1 % DROP EVERY 1 HOUR
     Route: 065
     Dates: start: 20200205, end: 20200207
  7. GATIFLOXACIN. [Concomitant]
     Active Substance: GATIFLOXACIN
     Indication: PROPHYLAXIS
     Dosage: EVERY 2 HOURS
     Route: 065
     Dates: start: 20200331, end: 20201020
  8. PREDNISOLONE ACETATE. [Concomitant]
     Active Substance: PREDNISOLONE ACETATE
     Dosage: 1% 1 DROP EVERY 8 HOURS
     Route: 065
     Dates: start: 20200227, end: 20200302
  9. LINAGLIPTIN [Concomitant]
     Active Substance: LINAGLIPTIN
     Indication: TYPE 2 DIABETES MELLITUS
     Dosage: 5 MG / DAY
     Route: 065
     Dates: start: 20181201
  10. NITROFURANTOIN. [Concomitant]
     Active Substance: NITROFURANTOIN
     Dosage: 100 MG, EVERY 12 HOURS
     Route: 065
     Dates: start: 20200129, end: 20200209
  11. ACETAZOLAMIDE. [Concomitant]
     Active Substance: ACETAZOLAMIDE
     Indication: PROPHYLAXIS
     Dosage: UNK
     Route: 065
     Dates: start: 20200327
  12. NITROFURANTOIN. [Concomitant]
     Active Substance: NITROFURANTOIN
     Indication: URINARY TRACT INFECTION
     Dosage: 100 MG, EVERY 6 HOURS
     Route: 065
     Dates: start: 20200119, end: 20200128
  13. PREDNISOLONE ACETATE. [Concomitant]
     Active Substance: PREDNISOLONE ACETATE
     Dosage: 1 %, DROP EVERY 1 HOUR
     Route: 065
     Dates: start: 20200207, end: 20200214
  14. INSULIN [Concomitant]
     Active Substance: INSULIN NOS
     Dosage: 32 U IN THE MORNING
     Route: 065
     Dates: start: 20200129
  15. DORZOLAMIDE AND TIMOLOL [Concomitant]
     Active Substance: DORZOLAMIDE\TIMOLOL
     Dosage: 0.5 %, DROP EVERY 12 HOURS
     Route: 065
     Dates: start: 20200207, end: 20200327
  16. NITROFURANTOIN. [Concomitant]
     Active Substance: NITROFURANTOIN
     Dosage: 100 MG EVERY 8 HOURS
     Route: 065
     Dates: start: 20200224, end: 20200315
  17. PREDNISOLONE ACETATE. [Concomitant]
     Active Substance: PREDNISOLONE ACETATE
     Dosage: 1% 1 DROP EVERY 6 HOURS
     Route: 065
     Dates: start: 20200220, end: 20200227
  18. DORZOLAMIDE AND TIMOLOL [Concomitant]
     Active Substance: DORZOLAMIDE\TIMOLOL
     Indication: IRIDOCYCLITIS
     Dosage: 0.5 %, DROP EVERY 12 HOURS
     Route: 065
     Dates: start: 20200205, end: 20200207
  19. METFORMIN [Concomitant]
     Active Substance: METFORMIN HYDROCHLORIDE
     Indication: TYPE 2 DIABETES MELLITUS
     Dosage: 1000 MG, 2 / DAY
     Route: 065
     Dates: start: 19950101
  20. ACETAZOLAMIDE. [Concomitant]
     Active Substance: ACETAZOLAMIDE
     Dosage: 250 MG EVERY 8 HOURS
     Route: 065
     Dates: start: 20200407, end: 20200522
  21. INSULIN [Concomitant]
     Active Substance: INSULIN NOS
     Indication: TYPE 2 DIABETES MELLITUS
     Dosage: 24 U IN THE MORNING
     Route: 065
     Dates: start: 20190401, end: 20200129
  22. ACETAZOLAMIDE. [Concomitant]
     Active Substance: ACETAZOLAMIDE
     Indication: IRIDOCYCLITIS
     Dosage: 250 MG, EVERY 12 HOURS
     Route: 065
     Dates: start: 20200205, end: 20200207
  23. ACETAZOLAMIDE. [Concomitant]
     Active Substance: ACETAZOLAMIDE
     Indication: GLAUCOMA
     Dosage: 250 MG EVERY 12 HOURS
     Route: 065
     Dates: start: 20200331, end: 20200522
  24. PREDNISOLONE ACETATE. [Concomitant]
     Active Substance: PREDNISOLONE ACETATE
     Dosage: 1% 1 DROP EVERY 4 HOURS
     Route: 065
     Dates: start: 20200214, end: 20200220

REACTIONS (2)
  - Glaucoma [Not Recovered/Not Resolved]
  - Retinal vein thrombosis [Not Recovered/Not Resolved]

NARRATIVE: CASE EVENT DATE: 20200205
